FAERS Safety Report 19862088 (Version 2)
Quarter: 2021Q3

REPORT INFORMATION
  Report Type: Spontaneous
  Country: PT (occurrence: PT)
  Receive Date: 20210921
  Receipt Date: 20210924
  Transmission Date: 20211014
  Serious: Yes (Other)
  Sender: FDA-Public Use
  Company Number: PT-PFIZER INC-202101206575

PATIENT
  Age: 68 Year
  Sex: Male

DRUGS (2)
  1. TAFAMIDIS MEGLUMINE [Suspect]
     Active Substance: TAFAMIDIS MEGLUMINE
     Dosage: UNK
  2. INOTERSEN [Concomitant]
     Active Substance: INOTERSEN SODIUM
     Dosage: UNK

REACTIONS (3)
  - Neuropathy peripheral [Unknown]
  - Ocular hypertension [Unknown]
  - Dry eye [Unknown]
